FAERS Safety Report 5266141-4 (Version None)
Quarter: 2007Q1

REPORT INFORMATION
  Report Type: 
  Country: None (occurrence: None)
  Receive Date: 20070305
  Receipt Date: 20070219
  Transmission Date: 20070707
  Serious: Yes (Hospitalization)
  Sender: FDA-Public Use
  Company Number: B0460235A

PATIENT
  Age: 13 Month
  Sex: Female
  Weight: 9.9791 kg

DRUGS (1)
  1. PYRIMETHAMINE TAB [Suspect]
     Indication: MALARIA PROPHYLAXIS
     Dosage: 50 MG / PER DAY /

REACTIONS (7)
  - CEREBRAL ATROPHY [None]
  - CEREBRAL MALARIA [None]
  - CONFUSIONAL STATE [None]
  - DRUG PRESCRIBING ERROR [None]
  - GASTROINTESTINAL DISORDER [None]
  - GRAND MAL CONVULSION [None]
  - HYPERTHERMIA [None]
